FAERS Safety Report 4310104-X (Version None)
Quarter: 2004Q1

REPORT INFORMATION
  Report Type: 
  Country: None (occurrence: None)
  Receive Date: 20040301
  Receipt Date: 20031118
  Transmission Date: 20041129
  Serious: No
  Sender: FDA-Public Use
  Company Number: WAES 0309USA02696

PATIENT
  Age: 71 Year
  Sex: Female

DRUGS (4)
  1. ZETIA [Suspect]
     Indication: BLOOD CHOLESTEROL INCREASED
     Dosage: 10 MG/DAILY/PO
     Route: 048
     Dates: start: 20030909
  2. PAXIL [Suspect]
  3. HYDRODIURIL [Concomitant]
  4. TRIAMTERENE [Concomitant]

REACTIONS (3)
  - ANXIETY [None]
  - DRUG INTERACTION INHIBITION [None]
  - NIGHT SWEATS [None]
